FAERS Safety Report 12955751 (Version 1)
Quarter: 2016Q4

REPORT INFORMATION
  Report Type: Spontaneous
  Country: US (occurrence: US)
  Receive Date: 20161118
  Receipt Date: 20161118
  Transmission Date: 20170207
  Serious: Yes (Other)
  Sender: FDA-Public Use
  Company Number: US-SA-2016SA207558

PATIENT
  Age: 53 Year
  Sex: Female

DRUGS (19)
  1. PROZAC [Concomitant]
     Active Substance: FLUOXETINE HYDROCHLORIDE
  2. CYCLOBENZAPRINE [Concomitant]
     Active Substance: CYCLOBENZAPRINE
  3. ASPIRIN. [Concomitant]
     Active Substance: ASPIRIN
  4. GABAPENTIN. [Concomitant]
     Active Substance: GABAPENTIN
  5. AUBAGIO [Suspect]
     Active Substance: TERIFLUNOMIDE
     Indication: MULTIPLE SCLEROSIS
     Route: 048
     Dates: start: 201505, end: 201609
  6. NORVASC [Concomitant]
     Active Substance: AMLODIPINE BESYLATE
  7. VITAMIN D [Concomitant]
     Active Substance: CHOLECALCIFEROL
  8. NORCO [Concomitant]
     Active Substance: ACETAMINOPHEN\HYDROCODONE BITARTRATE
  9. LANTUS [Concomitant]
     Active Substance: INSULIN GLARGINE
  10. ADDERALL [Concomitant]
     Active Substance: AMPHETAMINE ASPARTATE\AMPHETAMINE SULFATE\DEXTROAMPHETAMINE SACCHARATE\DEXTROAMPHETAMINE SULFATE
  11. LUNESTA [Concomitant]
     Active Substance: ESZOPICLONE
  12. CLONAZEPAM. [Concomitant]
     Active Substance: CLONAZEPAM
  13. FISH OIL [Concomitant]
     Active Substance: FISH OIL
  14. AMPYRA [Concomitant]
     Active Substance: DALFAMPRIDINE
  15. DEXTROAMPHETAMINE. [Concomitant]
     Active Substance: DEXTROAMPHETAMINE
  16. BACLOFEN. [Concomitant]
     Active Substance: BACLOFEN
  17. PROTONIX [Concomitant]
     Active Substance: PANTOPRAZOLE SODIUM
  18. ROBAXIN [Concomitant]
     Active Substance: METHOCARBAMOL
  19. JANUMET [Concomitant]
     Active Substance: METFORMIN HYDROCHLORIDE\SITAGLIPTIN PHOSPHATE

REACTIONS (2)
  - Cardiovascular disorder [Unknown]
  - Interstitial lung disease [Unknown]

NARRATIVE: CASE EVENT DATE: 20160804
